FAERS Safety Report 5351011-3 (Version None)
Quarter: 2007Q2

REPORT INFORMATION
  Report Type: 
  Country: None (occurrence: None)
  Receive Date: 20070608
  Receipt Date: 20070531
  Transmission Date: 20071010
  Serious: Yes (Other)
  Sender: FDA-Public Use
  Company Number: ES-ELI_LILLY_AND_COMPANY-ES200706000046

PATIENT
  Sex: Male

DRUGS (2)
  1. ZYPREXA [Suspect]
  2. CLOPIXOL [Concomitant]

REACTIONS (1)
  - THROMBOCYTOPENIA [None]
